FAERS Safety Report 14128460 (Version 14)
Quarter: 2020Q4

REPORT INFORMATION
  Report Type: Spontaneous
  Country: US (occurrence: US)
  Receive Date: 20171026
  Receipt Date: 20201014
  Transmission Date: 20210113
  Serious: Yes (Hospitalization, Other)
  Sender: FDA-Public Use
  Company Number: US-PFIZER INC-2017294202

PATIENT
  Age: 76 Year
  Sex: Female
  Weight: 67 kg

DRUGS (24)
  1. TYLENOL [Suspect]
     Active Substance: ACETAMINOPHEN
     Indication: PAIN IN EXTREMITY
     Dosage: 625 MG
     Route: 048
  2. AMPICILLIN [Concomitant]
     Active Substance: AMPICILLIN
     Dosage: UNK
  3. OXYCODONE [Concomitant]
     Active Substance: OXYCODONE
     Indication: ANXIETY
     Dosage: 1 MG, 1X/DAY (0.5 MG AND TAKE TWO ONCE A DAY AT BEDTIME)
     Dates: end: 201902
  4. LORAZEPAM. [Suspect]
     Active Substance: LORAZEPAM
     Indication: ANXIETY
     Dosage: 20 MG, AS NEEDED
  5. ADVIL PM [Concomitant]
     Active Substance: DIPHENHYDRAMINE CITRATE\IBUPROFEN
     Indication: ARTHRITIS
     Dosage: 2 DF, DAILY (AT NIGHT)
     Route: 048
     Dates: end: 201902
  6. SIMVASTATIN. [Concomitant]
     Active Substance: SIMVASTATIN
     Indication: GLUCOSE TOLERANCE IMPAIRED
  7. CENTRUM MULTIGUMMIES [Concomitant]
     Active Substance: MINERALS\VITAMINS
     Indication: SUPPLEMENTATION THERAPY
     Dosage: 1 DF (ONE TABLET, ONCE OR TWICE A DAY)
     Route: 048
     Dates: start: 2015, end: 201906
  8. CALTRATE [Concomitant]
     Active Substance: CALCIUM CARBONATE
     Dosage: UNK
     Dates: start: 201906
  9. OXYBUTYNIN. [Concomitant]
     Active Substance: OXYBUTYNIN CHLORIDE
     Dosage: 5 MG, 3X/DAY
  10. MYRBETRIQ [Concomitant]
     Active Substance: MIRABEGRON
     Dosage: 50 MG, 1X/DAY
  11. LORAZEPAM. [Suspect]
     Active Substance: LORAZEPAM
     Dosage: 0.5 MG, 1X/DAY (AT NIGHT)
     Route: 048
  12. TYLENOL [Suspect]
     Active Substance: ACETAMINOPHEN
     Indication: ARTHRALGIA
     Dosage: 325 MG, 3X/DAY
     Dates: start: 201901
  13. SIMVASTATIN. [Concomitant]
     Active Substance: SIMVASTATIN
     Indication: BLOOD CHOLESTEROL ABNORMAL
     Dosage: 20 MG, 1X/DAY (AT NIGHT)
     Route: 048
  14. SIMVASTATIN. [Concomitant]
     Active Substance: SIMVASTATIN
     Indication: THROMBOSIS PROPHYLAXIS
  15. CALCIUM [Concomitant]
     Active Substance: CALCIUM
     Indication: OSTEOPOROSIS
     Dosage: UNK, (ONCE OR TWICE A DAY)
  16. FULVESTRANT. [Concomitant]
     Active Substance: FULVESTRANT
     Indication: NEOPLASM MALIGNANT
     Dosage: UNK, MONTHLY
     Route: 030
  17. ASPIRIN 81 [Concomitant]
     Active Substance: ASPIRIN
     Indication: CARDIAC DISORDER
     Dosage: 81 MG, 1X/DAY
  18. IBRANCE [Suspect]
     Active Substance: PALBOCICLIB
     Dosage: 100 MG, CYCLIC (ONCE PER DAY FOR 21 DAYS THEN 7 DAYS OFF/ DAILY FOR 21 DAYS, 7 OFF)
     Route: 048
  19. COLACE [Concomitant]
     Active Substance: DOCUSATE SODIUM
     Indication: LAXATIVE SUPPORTIVE CARE
     Dosage: UNK, (ONCE OR TWICE A DAY)
     Dates: end: 201901
  20. MACROGOL 400 [Concomitant]
     Active Substance: POLYETHYLENE GLYCOL 400
     Dosage: UNK
  21. ASPIRIN 81 [Concomitant]
     Active Substance: ASPIRIN
     Indication: PAIN
  22. IBRANCE [Suspect]
     Active Substance: PALBOCICLIB
     Indication: BREAST CANCER STAGE IV
     Dosage: 100 MG, 1X/DAY
     Route: 048
     Dates: start: 201607, end: 20170915
  23. MELATONIN [Concomitant]
     Active Substance: MELATONIN
     Indication: INSOMNIA
     Dosage: 10 MG, DAILY (AT NIGHT)
     Route: 048
     Dates: start: 201705, end: 2018
  24. SYSTANE (HYPROMELLOSE 2910 (4000 MPA.S)) [Concomitant]
     Active Substance: HYPROMELLOSE 2910 (4000 MPA.S)
     Indication: DRY EYE
     Dosage: 30 ML, AS NEEDED (DAILY)

REACTIONS (11)
  - Cataract [Unknown]
  - Pain [Unknown]
  - Confusional state [Not Recovered/Not Resolved]
  - Diarrhoea [Unknown]
  - Amnesia [Not Recovered/Not Resolved]
  - Insomnia [Not Recovered/Not Resolved]
  - Foot deformity [Unknown]
  - Polyuria [Unknown]
  - Visual impairment [Not Recovered/Not Resolved]
  - Nasopharyngitis [Not Recovered/Not Resolved]
  - Hypersomnia [Unknown]

NARRATIVE: CASE EVENT DATE: 20171209
